FAERS Safety Report 25379058 (Version 2)
Quarter: 2025Q2

REPORT INFORMATION
  Report Type: Spontaneous
  Country: US (occurrence: US)
  Receive Date: 20250530
  Receipt Date: 20250614
  Transmission Date: 20250717
  Serious: Yes (Other)
  Sender: AUROBINDO
  Company Number: US-MLMSERVICE-20250509-PI503282-00192-2

PATIENT
  Age: 62 Year
  Sex: Male

DRUGS (8)
  1. LATANOPROST [Suspect]
     Active Substance: LATANOPROST
     Indication: Intraocular pressure increased
     Dosage: 1 DROP, ONCE A DAY (ONE DROP NIGHTLY BOTH EYES, OPHTHALMIC)
  2. LATANOPROST [Suspect]
     Active Substance: LATANOPROST
     Indication: Glaucoma
  3. DORZOLAMIDE HYDROCHLORIDE\TIMOLOL MALEATE [Suspect]
     Active Substance: DORZOLAMIDE HYDROCHLORIDE\TIMOLOL MALEATE
     Indication: Glaucoma
     Route: 061
  4. DORZOLAMIDE HYDROCHLORIDE\TIMOLOL MALEATE [Suspect]
     Active Substance: DORZOLAMIDE HYDROCHLORIDE\TIMOLOL MALEATE
     Indication: Intraocular pressure increased
  5. LATANOPROSTENE BUNOD [Suspect]
     Active Substance: LATANOPROSTENE BUNOD
     Indication: Intraocular pressure increased
     Dosage: 1 DROP, ONCE A DAY (ONE DROP ONCE DAILY BOTH EYES, OPHTHALMIC)
  6. COSOPT [Suspect]
     Active Substance: DORZOLAMIDE HYDROCHLORIDE\TIMOLOL MALEATE
     Indication: Intraocular pressure increased
     Dosage: 1 DROP, TWO TIMES A DAY (ONE DROP TWICE DAILY BOTH EYES, OPHTHALMIC)
  7. ACETAZOLAMIDE [Suspect]
     Active Substance: ACETAZOLAMIDE
     Indication: Intraocular pressure increased
     Dosage: 250 MILLIGRAM, FOUR TIMES/DAY
     Route: 048
  8. BRIMONIDINE [Concomitant]
     Active Substance: BRIMONIDINE TARTRATE
     Indication: Glaucoma
     Route: 065

REACTIONS (5)
  - Cystoid macular oedema [Recovered/Resolved]
  - Uveitis [Unknown]
  - Dry eye [Unknown]
  - Eye irritation [Unknown]
  - Paraesthesia [Unknown]
